FAERS Safety Report 13794880 (Version 2)
Quarter: 2017Q3

REPORT INFORMATION
  Report Type: Report from Study
  Country: US (occurrence: US)
  Receive Date: 20170726
  Receipt Date: 20170807
  Transmission Date: 20171127
  Serious: Yes (Hospitalization, Other)
  Sender: FDA-Public Use
  Company Number: US-BIOGEN-2017BI00437260

PATIENT
  Sex: Female

DRUGS (3)
  1. MORPHINE [Concomitant]
     Active Substance: MORPHINE
     Indication: PRODUCT USED FOR UNKNOWN INDICATION
     Route: 065
  2. AVONEX [Suspect]
     Active Substance: INTERFERON BETA-1A
     Indication: MULTIPLE SCLEROSIS
     Route: 065
     Dates: start: 20080719
  3. OXYCODONE [Concomitant]
     Active Substance: OXYCODONE
     Indication: PAIN
     Dosage: 3-4 TIMES A DAY
     Route: 065

REACTIONS (6)
  - Throat tightness [Recovered/Resolved]
  - Hip arthroplasty [Recovered/Resolved]
  - Hypertension [Not Recovered/Not Resolved]
  - Nerve injury [Not Recovered/Not Resolved]
  - Loss of control of legs [Not Recovered/Not Resolved]
  - Burning sensation [Not Recovered/Not Resolved]
